FAERS Safety Report 9684661 (Version 3)
Quarter: 2013Q4

REPORT INFORMATION
  Report Type: Spontaneous
  Country: GB (occurrence: GB)
  Receive Date: 20131112
  Receipt Date: 20131122
  Transmission Date: 20140711
  Serious: Yes (Disabling, Other)
  Sender: FDA-Public Use
  Company Number: GB-ELI_LILLY_AND_COMPANY-GB201310000688

PATIENT
  Age: 49 Year
  Sex: Female
  Weight: 92 kg

DRUGS (7)
  1. HUMULIN 30% REGULAR, 70% NPH [Suspect]
     Indication: TYPE 2 DIABETES MELLITUS
     Dosage: UNK UNK, UNKNOWN
     Route: 065
     Dates: start: 20121201
  2. HUMULIN 30% REGULAR, 70% NPH [Suspect]
     Dosage: 12 U, EACH EVENING
     Route: 058
     Dates: start: 20121206, end: 20131025
  3. HUMULIN 30% REGULAR, 70% NPH [Suspect]
     Dosage: 10 U, EACH EVENING
     Route: 058
     Dates: start: 20121206, end: 20131025
  4. METFORMIN [Concomitant]
     Dosage: 1 G, BID
  5. ENALAPRIL [Concomitant]
     Indication: HYPERTENSION
     Dosage: 10 MG, QD
  6. SIMVASTATIN [Concomitant]
     Dosage: 40 MG, EACH EVENING
  7. CO-CODAMOL [Concomitant]
     Indication: PAIN
     Dosage: 1 DF, PRN

REACTIONS (10)
  - Pain [Recovering/Resolving]
  - Nervous system disorder [Not Recovered/Not Resolved]
  - Lethargy [Unknown]
  - Fatigue [Unknown]
  - Blood glucose increased [Unknown]
  - Muscle spasms [Unknown]
  - Musculoskeletal stiffness [Unknown]
  - Acute painful neuropathy of rapid glycaemic control [Not Recovered/Not Resolved]
  - Gait disturbance [Unknown]
  - Blood glucose decreased [Unknown]
